FAERS Safety Report 24753791 (Version 6)
Quarter: 2025Q4

REPORT INFORMATION
  Report Type: Spontaneous
  Country: US (occurrence: US)
  Receive Date: 20241219
  Receipt Date: 20251231
  Transmission Date: 20260118
  Serious: Yes (Other)
  Sender: ROCHE
  Company Number: US-ROCHE-10000162392

PATIENT
  Age: 13 Year
  Sex: Male

DRUGS (5)
  1. HEMLIBRA [Suspect]
     Active Substance: EMICIZUMAB-KXWH
     Indication: Factor VIII deficiency
     Dosage: FORM STRENGTH: 60 MG/0.4 ML
     Route: 058
     Dates: start: 202212
  2. HEMLIBRA [Suspect]
     Active Substance: EMICIZUMAB-KXWH
     Dosage: STRENGTH: 12MG/ 0.4ML
     Route: 058
     Dates: start: 20230102
  3. HEMLIBRA [Suspect]
     Active Substance: EMICIZUMAB-KXWH
     Dosage: STRENGTH: 60MG/ 0.4ML
     Route: 058
     Dates: start: 20230102
  4. HEMLIBRA [Suspect]
     Active Substance: EMICIZUMAB-KXWH
     Dosage: FORM STRENGTH: 12 MG/0.4 ML
     Route: 058
     Dates: start: 202212
  5. HEMLIBRA [Suspect]
     Active Substance: EMICIZUMAB-KXWH
     Dosage: FORM STRENGTH: 60 MG/0.4 ML
     Route: 058
     Dates: start: 202212

REACTIONS (5)
  - Nasal congestion [Unknown]
  - Epistaxis [Unknown]
  - Nasal dryness [Unknown]
  - Haemorrhage [Not Recovered/Not Resolved]
  - Haemarthrosis [Unknown]

NARRATIVE: CASE EVENT DATE: 20251116
